FAERS Safety Report 9695780 (Version 2)
Quarter: 2014Q2

REPORT INFORMATION
  Report Type: Spontaneous
  Country: DK (occurrence: JP)
  Receive Date: 20131119
  Receipt Date: 20140630
  Transmission Date: 20141212
  Serious: Yes (Disabling, Other)
  Sender: FDA-Public Use
  Company Number: JP-FRI-1000051453

PATIENT
  Age: 29 Year
  Sex: Male
  Weight: 80 kg

DRUGS (4)
  1. LEXAPRO [Suspect]
     Indication: HYPERHIDROSIS
     Route: 048
     Dates: start: 20120726
  2. LEXAPRO [Suspect]
     Route: 048
     Dates: start: 20130923
  3. MEILAX [Concomitant]
     Route: 048
  4. ALLEGRA [Concomitant]
     Dosage: 60 G
     Route: 048

REACTIONS (7)
  - Rhabdomyolysis [Recovered/Resolved]
  - Overdose [Unknown]
  - Hyperhidrosis [Recovered/Resolved]
  - Depressed level of consciousness [Recovered/Resolved]
  - Pyrexia [Recovered/Resolved]
  - Tachycardia [Recovered/Resolved]
  - Off label use [Unknown]
